FAERS Safety Report 9637809 (Version 2)
Quarter: 2013Q4

REPORT INFORMATION
  Report Type: Spontaneous
  Country: US (occurrence: US)
  Receive Date: 20131022
  Receipt Date: 20131202
  Transmission Date: 20140711
  Serious: Yes (Disabling, Other)
  Sender: FDA-Public Use
  Company Number: US-PFIZER INC-2013300436

PATIENT
  Age: 55 Year
  Sex: Male
  Weight: 118 kg

DRUGS (4)
  1. GABAPENTIN [Suspect]
     Indication: NERVE INJURY
     Dosage: 300 MG, 1X/DAY
     Dates: end: 2013
  2. GABAPENTIN [Suspect]
     Indication: PERIPHERAL NERVE INJURY
  3. LYRICA [Suspect]
     Indication: NERVE INJURY
     Dosage: 75 MG, 1X/DAY
     Dates: end: 201309
  4. LYRICA [Suspect]
     Indication: PERIPHERAL NERVE INJURY

REACTIONS (2)
  - Abasia [Unknown]
  - Drug ineffective [Unknown]
